FAERS Safety Report 9643883 (Version 1)
Quarter: 2013Q4

REPORT INFORMATION
  Report Type: Spontaneous
  Country: GB (occurrence: None)
  Receive Date: 20131023
  Receipt Date: 20131023
  Transmission Date: 20140711
  Serious: Yes (Other)
  Sender: FDA-Public Use
  Company Number: METH20130014

PATIENT
  Age: 65 Year
  Sex: Male

DRUGS (3)
  1. METHYLPREDNISOLONE [Suspect]
     Indication: LYMPHOMA
  2. RITUXIMAB [Suspect]
     Indication: SPLENIC MARGINAL ZONE LYMPHOMA
  3. BENDAMUSTINE(BENDAMUSTINE)(UNKNOWN)(BENDAMUSTINE) [Concomitant]

REACTIONS (1)
  - Spleen disorder [None]
